FAERS Safety Report 5638575-7 (Version None)
Quarter: 2008Q1

REPORT INFORMATION
  Report Type: 
  Country: None (occurrence: None)
  Receive Date: 20080226
  Receipt Date: 20070516
  Transmission Date: 20080703
  Serious: No
  Sender: FDA-Public Use
  Company Number: A0651798A

PATIENT
  Age: 31 Year
  Sex: Female

DRUGS (4)
  1. IMITREX [Suspect]
     Indication: MIGRAINE
     Route: 065
  2. TYLENOL (CAPLET) [Suspect]
     Indication: MIGRAINE
  3. IBUPROFEN [Suspect]
     Indication: MIGRAINE
  4. EXCEDRIN [Suspect]
     Indication: MIGRAINE

REACTIONS (2)
  - CRYING [None]
  - THERAPEUTIC RESPONSE DELAYED [None]
